FAERS Safety Report 24165660 (Version 2)
Quarter: 2025Q3

REPORT INFORMATION
  Report Type: Spontaneous
  Country: CA (occurrence: CA)
  Receive Date: 20240802
  Receipt Date: 20250807
  Transmission Date: 20251020
  Serious: Yes (Death, Life-Threatening, Hospitalization, Disabling, Other)
  Sender: ORGANON
  Company Number: CA-ORGANON-O2407CAN002662

PATIENT
  Age: 43 Year
  Sex: Female
  Weight: 68 kg

DRUGS (142)
  1. FOSAMAX [Suspect]
     Active Substance: ALENDRONATE SODIUM
     Indication: Rheumatoid arthritis
     Route: 048
  2. FOSAMAX [Suspect]
     Active Substance: ALENDRONATE SODIUM
     Route: 065
  3. ACETAMINOPHEN [Suspect]
     Active Substance: ACETAMINOPHEN
     Indication: Product used for unknown indication
     Route: 058
  4. ACTEMRA [Suspect]
     Active Substance: TOCILIZUMAB
     Indication: Rheumatoid arthritis
     Route: 042
  5. ACTEMRA [Suspect]
     Active Substance: TOCILIZUMAB
     Route: 042
  6. ACTEMRA [Suspect]
     Active Substance: TOCILIZUMAB
     Route: 042
  7. ACTEMRA [Suspect]
     Active Substance: TOCILIZUMAB
     Route: 048
  8. ADALIMUMAB [Suspect]
     Active Substance: ADALIMUMAB
     Indication: Psoriatic arthropathy
     Route: 048
  9. ADALIMUMAB [Suspect]
     Active Substance: ADALIMUMAB
     Route: 058
  10. ARAVA [Suspect]
     Active Substance: LEFLUNOMIDE
     Indication: Rheumatoid arthritis
     Dosage: 20.0 MILLIGRAM, 1 EVERY 1 DAYS (QD)
     Route: 048
  11. CELEBREX [Suspect]
     Active Substance: CELECOXIB
     Indication: Product used for unknown indication
     Dosage: 20.0 MILLIGRAM, 1 EVERY 1 DAYS (QD)
     Route: 048
  12. CELEBREX [Suspect]
     Active Substance: CELECOXIB
     Dosage: 2.0 DOSAGE FORM, 1 EVERY 1 DAYS (QD)
     Route: 048
  13. CETIRIZINE [Suspect]
     Active Substance: CETIRIZINE HYDROCHLORIDE
     Indication: Rheumatoid arthritis
     Dosage: 10.0 MILLIGRAM, 1 EVERY 1 DAYS (QD)
     Route: 048
  14. CETIRIZINE [Suspect]
     Active Substance: CETIRIZINE HYDROCHLORIDE
     Indication: Product used for unknown indication
     Route: 065
  15. CETIRIZINE [Suspect]
     Active Substance: CETIRIZINE HYDROCHLORIDE
     Indication: Off label use
     Route: 065
  16. CHLORAPREP [Suspect]
     Active Substance: CHLORHEXIDINE GLUCONATE\ISOPROPYL ALCOHOL
     Indication: Product used for unknown indication
     Route: 061
  17. CHLORAPREP [Suspect]
     Active Substance: CHLORHEXIDINE GLUCONATE\ISOPROPYL ALCOHOL
     Route: 048
  18. CHLORHEXIDINE GLUCONATE\ISOPROPYL ALCOHOL [Suspect]
     Active Substance: CHLORHEXIDINE GLUCONATE\ISOPROPYL ALCOHOL
     Indication: Product used for unknown indication
     Route: 002
  19. CHLORHEXIDINE GLUCONATE [Suspect]
     Active Substance: CHLORHEXIDINE GLUCONATE
     Indication: Product used for unknown indication
     Route: 002
  20. CIMZIA [Suspect]
     Active Substance: CERTOLIZUMAB PEGOL
     Indication: Rheumatoid arthritis
     Route: 058
  21. CIMZIA [Suspect]
     Active Substance: CERTOLIZUMAB PEGOL
     Route: 058
  22. CORTISONE [Suspect]
     Active Substance: CORTISONE
     Indication: Rheumatoid arthritis
     Route: 048
  23. CORTISONE [Suspect]
     Active Substance: CORTISONE
     Route: 061
  24. CORTISONE [Suspect]
     Active Substance: CORTISONE
     Route: 003
  25. CORTISONE [Suspect]
     Active Substance: CORTISONE
     Route: 058
  26. CORTISONE [Suspect]
     Active Substance: CORTISONE
     Route: 065
  27. CORTISONE ACETATE [Suspect]
     Active Substance: CORTISONE ACETATE
     Indication: Rheumatoid arthritis
     Route: 061
  28. COSENTYX [Suspect]
     Active Substance: SECUKINUMAB
     Indication: Psoriatic arthropathy
     Route: 051
  29. COSENTYX [Suspect]
     Active Substance: SECUKINUMAB
     Indication: Psoriatic arthropathy
     Route: 065
  30. COSENTYX [Suspect]
     Active Substance: SECUKINUMAB
     Indication: Product used for unknown indication
     Route: 051
  31. COSENTYX [Suspect]
     Active Substance: SECUKINUMAB
     Route: 065
  32. DESOXIMETASONE [Suspect]
     Active Substance: DESOXIMETASONE
     Indication: Rheumatoid arthritis
     Dosage: 25.0 MILLIGRAM, 1 EVERY 1 WEEKS (QW)
     Route: 048
  33. DESOXIMETASONE [Suspect]
     Active Substance: DESOXIMETASONE
     Indication: Product used for unknown indication
     Route: 065
  34. DICLOFENAC [Suspect]
     Active Substance: DICLOFENAC
     Indication: Product used for unknown indication
     Route: 047
  35. DICLOFENAC POTASSIUM [Suspect]
     Active Substance: DICLOFENAC POTASSIUM
     Indication: Product used for unknown indication
     Route: 065
  36. DICLOFENAC POTASSIUM [Suspect]
     Active Substance: DICLOFENAC POTASSIUM
     Route: 065
  37. DICLOFENAC SODIUM [Suspect]
     Active Substance: DICLOFENAC SODIUM
     Indication: Product used for unknown indication
     Route: 065
  38. ENBREL [Suspect]
     Active Substance: ETANERCEPT
     Indication: Rheumatoid arthritis
     Dosage: 20.0 MILLIGRAM, 1 EVERY 1 WEEKS (QW)
     Route: 058
  39. ENBREL [Suspect]
     Active Substance: ETANERCEPT
     Indication: Psoriatic arthropathy
     Route: 065
  40. ERELZI [Suspect]
     Active Substance: ETANERCEPT-SZZS
     Indication: Rheumatoid arthritis
     Dosage: 50.0 MILLIGRAM, 1 EVERY 1 DAYS (QD), (NOT SPECIFIED)
     Route: 058
  41. FLUMETHASONE PIVALATE [Suspect]
     Active Substance: FLUMETHASONE PIVALATE
     Indication: Rheumatoid arthritis
     Route: 058
  42. FLUMETHASONE PIVALATE [Suspect]
     Active Substance: FLUMETHASONE PIVALATE
     Route: 058
  43. FOLIC ACID [Suspect]
     Active Substance: FOLIC ACID
     Indication: Rheumatoid arthritis
     Route: 058
  44. FOLIC ACID [Suspect]
     Active Substance: FOLIC ACID
     Route: 058
  45. FOLIC ACID [Suspect]
     Active Substance: FOLIC ACID
     Route: 058
  46. FOLIC ACID [Suspect]
     Active Substance: FOLIC ACID
     Route: 058
  47. FOLIC ACID [Suspect]
     Active Substance: FOLIC ACID
     Route: 058
  48. HUMIRA [Suspect]
     Active Substance: ADALIMUMAB
     Indication: Rheumatoid arthritis
     Route: 058
  49. HUMIRA [Suspect]
     Active Substance: ADALIMUMAB
     Indication: Psoriatic arthropathy
     Route: 065
  50. HYDROCORTISONE PROBUTATE [Suspect]
     Active Substance: HYDROCORTISONE PROBUTATE
     Indication: Product used for unknown indication
     Route: 065
  51. HYDROCORTISONE PROBUTATE [Suspect]
     Active Substance: HYDROCORTISONE PROBUTATE
     Indication: Product used for unknown indication
     Route: 065
  52. HYDROXYCHLOROQUINE [Suspect]
     Active Substance: HYDROXYCHLOROQUINE
     Indication: Rheumatoid arthritis
     Dosage: 420.0 MILLIGRAM, 1 EVERY 1 DAYS (QD), (NOT SPECIFIED)
     Route: 066
  53. HYDROXYCHLOROQUINE [Suspect]
     Active Substance: HYDROXYCHLOROQUINE
     Dosage: 400.0 MILLIGRAM, 1 EVERY 1 DAYS (QD)
     Route: 048
  54. HYDROXYCHLOROQUINE [Suspect]
     Active Substance: HYDROXYCHLOROQUINE
     Dosage: 40.0 MILLIGRAM, 1 EVERY 1 DAYS (QD)
     Route: 066
  55. INFLIXIMAB [Suspect]
     Active Substance: INFLIXIMAB
     Indication: Rheumatoid arthritis
     Route: 042
  56. KEVZARA [Suspect]
     Active Substance: SARILUMAB
     Indication: Rheumatoid arthritis
     Route: 065
  57. FLUMETHASONE PIVALATE [Suspect]
     Active Substance: FLUMETHASONE PIVALATE
     Indication: Rheumatoid arthritis
     Route: 058
  58. LYRICA [Suspect]
     Active Substance: PREGABALIN
     Indication: Product used for unknown indication
     Route: 065
  59. METHOTREXATE [Suspect]
     Active Substance: METHOTREXATE
     Indication: Rheumatoid arthritis
     Dosage: 25.0 MILLIGRAM, 1 EVERY 1 WEEKS (QW)
     Route: 048
  60. METHOTREXATE [Suspect]
     Active Substance: METHOTREXATE
     Dosage: 1 EVERY 1 DAYS (QD)
     Route: 058
  61. METHOTREXATE [Suspect]
     Active Substance: METHOTREXATE
     Route: 048
  62. METHOTREXATE [Suspect]
     Active Substance: METHOTREXATE
     Route: 013
  63. METHOTREXATE [Suspect]
     Active Substance: METHOTREXATE
     Route: 058
  64. METHOTREXATE [Suspect]
     Active Substance: METHOTREXATE
     Route: 048
  65. METHOTREXATE SODIUM [Suspect]
     Active Substance: METHOTREXATE SODIUM
     Indication: Rheumatoid arthritis
     Route: 048
  66. MYCOPHENOLATE MOFETIL [Suspect]
     Active Substance: MYCOPHENOLATE MOFETIL
     Indication: Product used for unknown indication
     Route: 065
  67. NAPROXEN SODIUM [Suspect]
     Active Substance: NAPROXEN SODIUM
     Indication: Rheumatoid arthritis
     Dosage: 500.0 MILLIGRAM, 2 EVERY 1 DAYS (BID)
     Route: 065
  68. NAPROXEN SODIUM [Suspect]
     Active Substance: NAPROXEN SODIUM
     Route: 065
  69. NEOMYCIN [Suspect]
     Active Substance: NEOMYCIN
     Indication: Product used for unknown indication
     Route: 065
  70. ORENCIA [Suspect]
     Active Substance: ABATACEPT
     Indication: Rheumatoid arthritis
     Route: 042
  71. ORENCIA [Suspect]
     Active Substance: ABATACEPT
     Route: 065
  72. ORENCIA [Suspect]
     Active Substance: ABATACEPT
     Route: 058
  73. OTEZLA [Suspect]
     Active Substance: APREMILAST
     Indication: Product used for unknown indication
     Dosage: 3.0 MILLIGRAM, 2 EVERY 1 DAYS (BID)
     Route: 048
  74. OXYCODONE [Suspect]
     Active Substance: OXYCODONE
     Indication: Product used for unknown indication
     Route: 065
  75. OXYCODONE [Suspect]
     Active Substance: OXYCODONE
     Route: 065
  76. OXYCODONE TEREPHTHALATE [Suspect]
     Active Substance: OXYCODONE TEREPHTHALATE
     Indication: Product used for unknown indication
     Route: 065
  77. PHTHALYLSULFATHIAZOLE [Suspect]
     Active Substance: PHTHALYLSULFATHIAZOLE
     Indication: Rheumatoid arthritis
     Dosage: 400.0 MILLIGRAM, 1 EVERY 1 DAYS (QD)
     Route: 065
  78. PHTHALYLSULFATHIAZOLE [Suspect]
     Active Substance: PHTHALYLSULFATHIAZOLE
     Route: 016
  79. PHTHALYLSULFATHIAZOLE [Suspect]
     Active Substance: PHTHALYLSULFATHIAZOLE
     Dosage: 1000.0 MILLIGRAM, 2 EVERY 1 DAYS (BID)
     Route: 065
  80. PHTHALYLSULFATHIAZOLE [Suspect]
     Active Substance: PHTHALYLSULFATHIAZOLE
     Route: 048
  81. PHTHALYLSULFATHIAZOLE [Suspect]
     Active Substance: PHTHALYLSULFATHIAZOLE
     Route: 065
  82. PREDNISONE [Suspect]
     Active Substance: PREDNISONE
     Indication: Rheumatoid arthritis
     Route: 048
  83. PREDNISONE [Suspect]
     Active Substance: PREDNISONE
     Indication: Psoriatic arthropathy
     Route: 048
  84. PREDNISONE [Suspect]
     Active Substance: PREDNISONE
     Indication: Condition aggravated
     Route: 048
  85. PREDNISONE [Suspect]
     Active Substance: PREDNISONE
     Route: 042
  86. PREDNISONE [Suspect]
     Active Substance: PREDNISONE
     Route: 048
  87. PSEUDOEPHEDRINE HYDROCHLORIDE [Suspect]
     Active Substance: PSEUDOEPHEDRINE HYDROCHLORIDE
     Indication: Rheumatoid arthritis
     Route: 065
  88. PSEUDOEPHEDRINE HYDROCHLORIDE [Suspect]
     Active Substance: PSEUDOEPHEDRINE HYDROCHLORIDE
     Indication: Product used for unknown indication
     Route: 065
  89. PSEUDOEPHEDRINE [Suspect]
     Active Substance: PSEUDOEPHEDRINE
     Indication: Rheumatoid arthritis
     Route: 065
  90. PSEUDOEPHEDRINE [Suspect]
     Active Substance: PSEUDOEPHEDRINE
     Indication: Product used for unknown indication
  91. CETIRIZINE HYDROCHLORIDE [Suspect]
     Active Substance: CETIRIZINE HYDROCHLORIDE
     Indication: Rheumatoid arthritis
     Route: 048
  92. CETIRIZINE HYDROCHLORIDE [Suspect]
     Active Substance: CETIRIZINE HYDROCHLORIDE
     Indication: Product used for unknown indication
     Route: 048
  93. CETIRIZINE HYDROCHLORIDE [Suspect]
     Active Substance: CETIRIZINE HYDROCHLORIDE
     Route: 048
  94. RITUXIMAB [Suspect]
     Active Substance: RITUXIMAB
     Indication: Rheumatoid arthritis
     Route: 058
  95. RITUXIMAB [Suspect]
     Active Substance: RITUXIMAB
     Route: 042
  96. SIMPONI [Suspect]
     Active Substance: GOLIMUMAB
     Indication: Rheumatoid arthritis
     Dosage: 50.0 MILLIGRAM, 1 EVERY 1 MONTHS (QM), (SOLUTION SUBCUTANEOUS)
     Route: 058
  97. STELARA [Suspect]
     Active Substance: USTEKINUMAB
     Indication: Psoriatic arthropathy
     Route: 042
  98. STELARA [Suspect]
     Active Substance: USTEKINUMAB
     Indication: Product used for unknown indication
     Route: 042
  99. SULFAMETHOXAZOLE [Suspect]
     Active Substance: SULFAMETHOXAZOLE
     Indication: Product used for unknown indication
     Route: 065
  100. SULFAMETHOXAZOLE AND TRIMETHOPRIM [Suspect]
     Active Substance: SULFAMETHOXAZOLE\TRIMETHOPRIM
     Indication: Product used for unknown indication
     Route: 065
  101. SULFASALAZINE [Suspect]
     Active Substance: SULFASALAZINE
     Indication: Rheumatoid arthritis
     Dosage: 1000.0 MILLIGRAM, 2 EVERY 1 DAYS (BID), (NOT SPECIFIED)
     Route: 065
  102. SULFASALAZINE [Suspect]
     Active Substance: SULFASALAZINE
     Indication: Product used for unknown indication
     Dosage: 1.0 GRAM, 2 EVERY 1 DAYS (BID)
     Route: 065
  103. SULFASALAZINE [Suspect]
     Active Substance: SULFASALAZINE
     Dosage: 1.0 GRAM, 1 EVERY 1 DAYS (QD)
     Route: 065
  104. SULFASALAZINE [Suspect]
     Active Substance: SULFASALAZINE
     Dosage: 1000.0 MILLIGRAM, 2 EVERY 1 DAYS (BID)
     Route: 048
  105. SULFASALAZINE [Suspect]
     Active Substance: SULFASALAZINE
     Route: 048
  106. SULFASALAZINE [Suspect]
     Active Substance: SULFASALAZINE
     Route: 065
  107. SULFASALAZINE [Suspect]
     Active Substance: SULFASALAZINE
     Route: 065
  108. TRAMADOL HYDROCHLORIDE [Suspect]
     Active Substance: TRAMADOL HYDROCHLORIDE
     Indication: Product used for unknown indication
     Route: 065
  109. XELJANZ [Suspect]
     Active Substance: TOFACITINIB CITRATE
     Indication: Rheumatoid arthritis
     Dosage: 5.0 MILLIGRAM, 1 EVERY 1 WEEKS (QW), (NOT SPECIFIED)
     Route: 048
  110. XELJANZ [Suspect]
     Active Substance: TOFACITINIB CITRATE
     Indication: Psoriatic arthropathy
     Dosage: 5.0 MILLIGRAM, 1 EVERY 1 DAYS (QD)
     Route: 048
  111. XELJANZ [Suspect]
     Active Substance: TOFACITINIB CITRATE
     Dosage: 5.0 MILLIGRAM, 2 EVERY 1 DAYS (BID)
     Route: 048
  112. XELJANZ [Suspect]
     Active Substance: TOFACITINIB CITRATE
     Route: 048
  113. MARVELON [Concomitant]
     Active Substance: DESOGESTREL\ETHINYL ESTRADIOL
     Route: 065
  114. ATIVAN [Concomitant]
     Active Substance: LORAZEPAM
     Indication: Product used for unknown indication
     Route: 065
  115. CAFFEINE [Concomitant]
     Active Substance: CAFFEINE
     Route: 065
  116. CALCIUM [Concomitant]
     Active Substance: CALCIUM
     Route: 065
  117. CHOLECALCIFEROL [Concomitant]
     Active Substance: CHOLECALCIFEROL
     Route: 065
  118. CODEINE [Concomitant]
     Active Substance: CODEINE
     Route: 065
  119. DESOXIMETASONE [Concomitant]
     Active Substance: DESOXIMETASONE
     Route: 065
  120. DOXYCYCLINE [Concomitant]
     Active Substance: DOXYCYCLINE
     Route: 065
  121. ERGOCALCIFEROL [Concomitant]
     Active Substance: ERGOCALCIFEROL
     Route: 065
  122. GLUCOSAMINE [Concomitant]
     Active Substance: GLUCOSAMINE
     Route: 065
  123. IBUPROFEN [Concomitant]
     Active Substance: IBUPROFEN
     Route: 065
  124. LANSOPRAZOLE [Concomitant]
     Active Substance: LANSOPRAZOLE
     Route: 065
  125. LEVOTHYROXINE SODIUM [Concomitant]
     Active Substance: LEVOTHYROXINE SODIUM
     Route: 065
  126. LISINOPRIL [Concomitant]
     Active Substance: LISINOPRIL
     Route: 065
  127. MAGNESIUM [Concomitant]
     Active Substance: MAGNESIUM
     Route: 065
  128. MELOXICAM [Concomitant]
     Active Substance: MELOXICAM
     Route: 065
  129. PANTOPRAZOLE SODIUM [Concomitant]
     Active Substance: PANTOPRAZOLE SODIUM
     Route: 065
  130. PIROXICAM [Concomitant]
     Active Substance: PIROXICAM
     Route: 065
  131. PREDNISOLONE [Concomitant]
     Active Substance: PREDNISOLONE
     Route: 065
  132. QUETIAPINE [Concomitant]
     Active Substance: QUETIAPINE
     Route: 065
  133. RAMIPRIL [Concomitant]
     Active Substance: RAMIPRIL
     Route: 065
  134. RISEDRONATE SODIUM [Concomitant]
     Active Substance: RISEDRONATE SODIUM
     Route: 065
  135. SULFASALAZINE [Concomitant]
     Active Substance: SULFASALAZINE
     Route: 065
  136. FISH OIL [Concomitant]
     Active Substance: FISH OIL
     Route: 065
  137. VITAMIN C [Concomitant]
     Active Substance: ASCORBIC ACID
     Route: 065
  138. TYLENOL WITH CODEINE [Concomitant]
     Active Substance: ACETAMINOPHEN\CODEINE PHOSPHATE
     Route: 065
  139. DESOGESTREL [Concomitant]
     Active Substance: DESOGESTREL
     Indication: Product used for unknown indication
     Route: 065
  140. DOXYCYCLINE HYCLATE [Concomitant]
     Active Substance: DOXYCYCLINE HYCLATE
     Indication: Product used for unknown indication
     Route: 065
  141. PANTOPRAZOLE SODIUM [Concomitant]
     Active Substance: PANTOPRAZOLE SODIUM
     Indication: Product used for unknown indication
     Route: 065
  142. QUETIAPINE FUMARATE [Concomitant]
     Active Substance: QUETIAPINE FUMARATE
     Indication: Product used for unknown indication
     Route: 065

REACTIONS (94)
  - Abdominal discomfort [Fatal]
  - Abdominal pain upper [Fatal]
  - Alopecia [Fatal]
  - Anti-cyclic citrullinated peptide antibody positive [Fatal]
  - Anxiety [Fatal]
  - Arthralgia [Fatal]
  - Arthropathy [Fatal]
  - Asthenia [Fatal]
  - Asthma [Fatal]
  - Autoimmune disorder [Fatal]
  - Blister [Fatal]
  - Blood cholesterol increased [Fatal]
  - C-reactive protein [Fatal]
  - C-reactive protein abnormal [Fatal]
  - Chest pain [Fatal]
  - Confusional state [Fatal]
  - Contusion [Fatal]
  - Decreased appetite [Fatal]
  - Deep vein thrombosis postoperative [Fatal]
  - Diarrhoea [Fatal]
  - Discomfort [Fatal]
  - Drug hypersensitivity [Fatal]
  - Dry mouth [Fatal]
  - Duodenal ulcer perforation [Fatal]
  - Dyspnoea [Fatal]
  - Fatigue [Fatal]
  - Fibromyalgia [Fatal]
  - Folliculitis [Fatal]
  - Gait inability [Fatal]
  - Gastrointestinal disorder [Fatal]
  - General physical health deterioration [Fatal]
  - Glossodynia [Fatal]
  - Hand deformity [Fatal]
  - Headache [Fatal]
  - Helicobacter infection [Fatal]
  - Hepatic enzyme increased [Fatal]
  - Hip arthroplasty [Fatal]
  - Hypersensitivity [Fatal]
  - Hypertension [Fatal]
  - Hypoaesthesia [Fatal]
  - Ill-defined disorder [Fatal]
  - Impaired healing [Fatal]
  - Infection [Fatal]
  - Infusion related reaction [Fatal]
  - Injury [Fatal]
  - Irritable bowel syndrome [Fatal]
  - Joint swelling [Fatal]
  - Knee arthroplasty [Fatal]
  - Lip dry [Fatal]
  - Live birth [Fatal]
  - Liver disorder [Fatal]
  - Liver injury [Fatal]
  - Lower limb fracture [Fatal]
  - Lower respiratory tract infection [Fatal]
  - Lung disorder [Fatal]
  - Malaise [Fatal]
  - Maternal exposure during pregnancy [Fatal]
  - Mobility decreased [Fatal]
  - Muscle injury [Fatal]
  - Musculoskeletal pain [Fatal]
  - Musculoskeletal stiffness [Fatal]
  - Nasopharyngitis [Fatal]
  - Nausea [Fatal]
  - Night sweats [Fatal]
  - Oedema [Fatal]
  - Osteoarthritis [Fatal]
  - Pain [Fatal]
  - Pemphigus [Fatal]
  - Pericarditis [Fatal]
  - Peripheral swelling [Fatal]
  - Pregnancy [Fatal]
  - Pruritus [Fatal]
  - Psoriatic arthropathy [Fatal]
  - Pyrexia [Fatal]
  - Rash [Fatal]
  - Rheumatic fever [Fatal]
  - Rheumatoid arthritis [Fatal]
  - Rheumatoid factor positive [Fatal]
  - Road traffic accident [Fatal]
  - Sciatica [Fatal]
  - Sinusitis [Fatal]
  - Sleep disorder due to general medical condition, insomnia type [Fatal]
  - Stomatitis [Fatal]
  - Swelling [Fatal]
  - Swollen joint count increased [Fatal]
  - Synovitis [Fatal]
  - Systemic lupus erythematosus [Fatal]
  - Type 2 diabetes mellitus [Fatal]
  - Urticaria [Fatal]
  - Vomiting [Fatal]
  - Weight increased [Fatal]
  - Wheezing [Fatal]
  - Wound [Fatal]
  - Normal newborn [Fatal]
